FAERS Safety Report 9918831 (Version 1)
Quarter: 2014Q1

REPORT INFORMATION
  Report Type: Spontaneous
  Country: US (occurrence: US)
  Receive Date: 20140224
  Receipt Date: 20140224
  Transmission Date: 20141002
  Serious: No
  Sender: FDA-Public Use
  Company Number: US-009507513-1402USA010683

PATIENT
  Age: 57 Year
  Sex: Female

DRUGS (4)
  1. CORICIDIN HBP COLD AND FLU [Suspect]
     Indication: NASOPHARYNGITIS
     Dosage: UNK, UNKNOWN
     Route: 048
  2. CORICIDIN HBP COLD AND FLU [Suspect]
     Indication: SNEEZING
  3. CORICIDIN HBP COLD AND FLU [Suspect]
     Indication: NASAL ASPIRATION
  4. CORICIDIN HBP COLD AND FLU [Suspect]
     Indication: HEADACHE

REACTIONS (1)
  - Somnolence [Unknown]
